FAERS Safety Report 8538732-6 (Version None)
Quarter: 2012Q3

REPORT INFORMATION
  Report Type: 
  Country: None (occurrence: None)
  Receive Date: 20120726
  Receipt Date: 20120410
  Transmission Date: 20120928
  Serious: Yes (Other)
  Sender: FDA-Public Use
  Company Number: NG-RANBAXY-2012R5-58497

PATIENT
  Age: 50 Year

DRUGS (2)
  1. NAPROXEN [Suspect]
     Indication: ABDOMINAL PAIN
     Dosage: UNK
     Route: 065
  2. ACETAMINOPHEN [Concomitant]
     Indication: PRODUCT USED FOR UNKNOWN INDICATION
     Dosage: UNK
     Route: 065

REACTIONS (4)
  - JAUNDICE [None]
  - FREQUENT BOWEL MOVEMENTS [None]
  - VOMITING [None]
  - ASTHENIA [None]
